FAERS Safety Report 20148751 (Version 1)
Quarter: 2021Q4

REPORT INFORMATION
  Report Type: Spontaneous
  Country: DE (occurrence: DE)
  Receive Date: 20211204
  Receipt Date: 20211204
  Transmission Date: 20220303
  Serious: Yes (Hospitalization)
  Sender: FDA-Public Use
  Company Number: DE-NOVARTISPH-NVSC2020DE067714

PATIENT
  Age: 63 Year
  Sex: Female
  Weight: 60 kg

DRUGS (9)
  1. OXALIPLATIN [Suspect]
     Active Substance: OXALIPLATIN
     Indication: Rectal cancer
     Dosage: UNK UNK, CYCLIC
     Route: 042
     Dates: start: 20180814, end: 20180814
  2. OXALIPLATIN [Suspect]
     Active Substance: OXALIPLATIN
     Dosage: 145 MG, QCY
     Route: 042
     Dates: start: 20181023
  3. FLUOROURACIL [Suspect]
     Active Substance: FLUOROURACIL
     Indication: Rectal cancer
     Dosage: UNK UNK, QCY
     Route: 042
     Dates: start: 20180814, end: 20180814
  4. FLUOROURACIL [Suspect]
     Active Substance: FLUOROURACIL
     Dosage: 4820 MG, QCY
     Route: 042
     Dates: start: 20181023
  5. LEUCOVORIN [Suspect]
     Active Substance: LEUCOVORIN
     Indication: Rectal cancer
     Dosage: UNK UNK, QCY
     Route: 042
     Dates: start: 20180814, end: 20180814
  6. LEUCOVORIN [Suspect]
     Active Substance: LEUCOVORIN
     Dosage: 690 MG, QCY
     Route: 042
     Dates: start: 20181023
  7. AFLIBERCEPT [Suspect]
     Active Substance: AFLIBERCEPT
     Indication: Rectal cancer
     Dosage: UNK UNK, CYCLIC
     Route: 042
     Dates: start: 20180814, end: 20180814
  8. AFLIBERCEPT [Suspect]
     Active Substance: AFLIBERCEPT
     Dosage: 290 MG, QCY
     Route: 042
     Dates: start: 20180911
  9. AFLIBERCEPT [Suspect]
     Active Substance: AFLIBERCEPT
     Dosage: 290 MG QCY (CYCLICAL)
     Route: 042
     Dates: start: 20181023, end: 20181023

REACTIONS (3)
  - Nausea [Recovered/Resolved]
  - Vomiting [Recovered/Resolved]
  - Gastrointestinal disorder [Recovered/Resolved]

NARRATIVE: CASE EVENT DATE: 20180925
